FAERS Safety Report 13597085 (Version 3)
Quarter: 2017Q3

REPORT INFORMATION
  Report Type: Spontaneous
  Country: BR (occurrence: BR)
  Receive Date: 20170531
  Receipt Date: 20170721
  Transmission Date: 20171127
  Serious: Yes (Life-Threatening, Other)
  Sender: FDA-Public Use
  Company Number: PHHY2017BR079987

PATIENT
  Age: 78 Year
  Sex: Male

DRUGS (3)
  1. PREDNISOLONE. [Concomitant]
     Active Substance: PREDNISOLONE
     Indication: ANAEMIA PROPHYLAXIS
     Route: 065
  2. CICLOSPORIN [Suspect]
     Active Substance: CYCLOSPORINE
     Indication: APLASTIC ANAEMIA
     Dosage: 5 MG/KG, QD
     Route: 065
     Dates: start: 20091218
  3. ANTITHYMOCYTE IMMUNOGLOBULIN [Suspect]
     Active Substance: THYMOCYTE IMMUNE GLOBULIN NOS
     Indication: APLASTIC ANAEMIA
     Dosage: 3.5 MG/KG, QD
     Route: 065
     Dates: start: 20091218

REACTIONS (8)
  - Renal impairment [Unknown]
  - Drug ineffective [Unknown]
  - Blood test abnormal [Unknown]
  - Drug intolerance [Unknown]
  - Platelet count decreased [Unknown]
  - Liver function test abnormal [Unknown]
  - Haemoglobin decreased [Unknown]
  - Product use in unapproved indication [Unknown]
